FAERS Safety Report 6554773-2 (Version None)
Quarter: 2010Q1

REPORT INFORMATION
  Report Type: 
  Country: None (occurrence: None)
  Receive Date: 20100127
  Receipt Date: 20100121
  Transmission Date: 20100710
  Serious: Yes (Other)
  Sender: FDA-Public Use
  Company Number: US-GILEAD-2008-0019372

PATIENT
  Sex: Male
  Weight: 81.72 kg

DRUGS (9)
  1. LETAIRIS [Suspect]
     Indication: PULMONARY ARTERIAL HYPERTENSION
     Route: 048
     Dates: start: 20080312, end: 20081124
  2. SPIRONOLACTONE [Concomitant]
  3. NORVASC [Concomitant]
  4. GABAPENTIN [Concomitant]
  5. NOVOLIN N [Concomitant]
  6. NOVOLOG [Concomitant]
  7. XIFAXAN [Concomitant]
  8. PROTONIX [Concomitant]
  9. CALCIUM CITRATE [Concomitant]

REACTIONS (1)
  - HEPATIC ENZYME INCREASED [None]
